FAERS Safety Report 11261222 (Version 1)
Quarter: 2015Q3

REPORT INFORMATION
  Report Type: Spontaneous
  Country: US (occurrence: US)
  Receive Date: 20150710
  Receipt Date: 20150710
  Transmission Date: 20151125
  Serious: No
  Sender: FDA-Public Use
  Company Number: US-PURDUE-USA-2014-0120003

PATIENT
  Age: 38 Year
  Sex: Female

DRUGS (4)
  1. BUTRANS [Suspect]
     Active Substance: BUPRENORPHINE
     Indication: PAIN
     Dosage: 15 MCG/HR, UNK
     Route: 062
     Dates: start: 20140918, end: 20150107
  2. BUTRANS [Suspect]
     Active Substance: BUPRENORPHINE
     Dosage: 5 MCG, WEEKLY
     Route: 062
     Dates: start: 20140725, end: 201408
  3. NORCO [Concomitant]
     Active Substance: ACETAMINOPHEN\HYDROCODONE BITARTRATE
     Indication: PRODUCT USED FOR UNKNOWN INDICATION
     Dosage: UNK, TID
     Route: 048
  4. BUTRANS [Suspect]
     Active Substance: BUPRENORPHINE
     Dosage: 10 MCG/HR, WEEKLY
     Route: 062
     Dates: start: 20140821, end: 201409

REACTIONS (10)
  - Application site discolouration [Recovered/Resolved]
  - Heart rate increased [Recovered/Resolved]
  - Application site pain [Recovered/Resolved]
  - Drug withdrawal syndrome [Recovered/Resolved]
  - Somnolence [Recovered/Resolved]
  - Feeling abnormal [Recovered/Resolved]
  - Crying [Recovered/Resolved]
  - Borderline personality disorder [Recovered/Resolved]
  - Application site rash [Recovered/Resolved]
  - Application site pruritus [Recovered/Resolved]

NARRATIVE: CASE EVENT DATE: 201410
